FAERS Safety Report 8578839 (Version 3)
Quarter: 2014Q1

REPORT INFORMATION
  Report Type: Spontaneous
  Country: US (occurrence: US)
  Receive Date: 20120524
  Receipt Date: 20140226
  Transmission Date: 20141002
  Serious: No
  Sender: FDA-Public Use
  Company Number: US-ASTRAZENECA-2012SE28494

PATIENT
  Age: 49 Year
  Sex: Male
  Weight: 72.6 kg

DRUGS (12)
  1. NEXIUM [Suspect]
     Indication: GASTROOESOPHAGEAL REFLUX DISEASE
     Route: 048
  2. NEXIUM [Suspect]
     Indication: HIATUS HERNIA
     Route: 048
  3. NEXIUM [Suspect]
     Indication: GASTROOESOPHAGEAL REFLUX DISEASE
     Route: 048
     Dates: start: 201309
  4. NEXIUM [Suspect]
     Indication: HIATUS HERNIA
     Route: 048
     Dates: start: 201309
  5. ATENOLOL [Concomitant]
  6. ATORVASTATIN [Concomitant]
  7. LISINOPRIL HCTZ [Concomitant]
  8. LORASEPAN [Concomitant]
  9. MECLIZINE [Concomitant]
  10. PROMETHAZINE [Concomitant]
  11. TRAMADOL [Concomitant]
  12. VITAMIN D CAPSULES [Concomitant]

REACTIONS (8)
  - Gastrooesophageal reflux disease [Unknown]
  - Aphagia [Unknown]
  - Stress [Unknown]
  - Gastrooesophageal reflux disease [Not Recovered/Not Resolved]
  - Anaemia [Unknown]
  - Malaise [Unknown]
  - Off label use [Unknown]
  - Drug dose omission [Unknown]
